FAERS Safety Report 20509495 (Version 1)
Quarter: 2022Q1

REPORT INFORMATION
  Report Type: Spontaneous
  Country: KR (occurrence: KR)
  Receive Date: 20220224
  Receipt Date: 20220224
  Transmission Date: 20220424
  Serious: Yes (Hospitalization)
  Sender: FDA-Public Use
  Company Number: KR-ABBOTT-2022A-1345811

PATIENT
  Age: 28 Year
  Sex: Male
  Weight: 103 kg

DRUGS (4)
  1. DEPAKOTE ER [Suspect]
     Active Substance: DIVALPROEX SODIUM
     Indication: Product used for unknown indication
     Dosage: DEPAKOTE EXTENDED RELEASE TABLET 250MG X 2
     Route: 065
  2. INVEGA [Suspect]
     Active Substance: PALIPERIDONE
     Indication: Product used for unknown indication
     Dosage: INVEGA EXTENDED-RELEASE TABLET 6MG X 1
     Route: 065
  3. LITHIUM CARBONATE [Suspect]
     Active Substance: LITHIUM CARBONATE
     Indication: Product used for unknown indication
     Dosage: LITHIUM CARBONATE TABLET 300MG X 1.5
     Route: 065
  4. ZYPREXA [Suspect]
     Active Substance: OLANZAPINE
     Indication: Product used for unknown indication
     Route: 065

REACTIONS (5)
  - Condition aggravated [Unknown]
  - Physical disability [Unknown]
  - Stress [Unknown]
  - Weight increased [Unknown]
  - Pain [Unknown]
